FAERS Safety Report 10263249 (Version 1)
Quarter: 2014Q2

REPORT INFORMATION
  Report Type: Spontaneous
  Country: US (occurrence: US)
  Receive Date: 20140626
  Receipt Date: 20140626
  Transmission Date: 20141212
  Serious: No
  Sender: FDA-Public Use
  Company Number: US-LUNDBECK-DKLU1096419

PATIENT
  Sex: Female

DRUGS (4)
  1. ONFI (ORAL SUSPENSION) [Suspect]
     Indication: EPILEPSY
  2. ONFI (ORAL SUSPENSION) [Suspect]
     Indication: LENNOX-GASTAUT SYNDROME
  3. DEPAKOTE [Concomitant]
     Indication: PRODUCT USED FOR UNKNOWN INDICATION
  4. KEPPRA [Concomitant]
     Indication: PRODUCT USED FOR UNKNOWN INDICATION

REACTIONS (1)
  - Somnolence [Unknown]
